FAERS Safety Report 15552676 (Version 10)
Quarter: 2019Q1

REPORT INFORMATION
  Report Type: Spontaneous
  Country: FR (occurrence: FR)
  Receive Date: 20181025
  Receipt Date: 20190110
  Transmission Date: 20190417
  Serious: Yes (Life-Threatening, Hospitalization, Other)
  Sender: FDA-Public Use
  Company Number: PHHY2018FR132090

PATIENT
  Age: 62 Year
  Sex: Male
  Weight: 112 kg

DRUGS (12)
  1. BISOPROLOL [Suspect]
     Active Substance: BISOPROLOL
     Indication: PRODUCT USED FOR UNKNOWN INDICATION
     Dosage: 520 MG, (50 TABLETS OF 10MG)
     Route: 048
     Dates: start: 20151222, end: 20151222
  2. ATORVASTATIN [Suspect]
     Active Substance: ATORVASTATIN
     Indication: PRODUCT USED FOR UNKNOWN INDICATION
     Dosage: 400 MG, (20TABLETS OF 20 MG)
     Route: 048
     Dates: start: 20151222, end: 20151222
  3. APIXABAN [Suspect]
     Active Substance: APIXABAN
     Dosage: 200 MG, (40TABLETS OF 5MG)
     Route: 048
     Dates: start: 20151222, end: 20151222
  4. TAHOR [Suspect]
     Active Substance: ATORVASTATIN CALCIUM
     Indication: PRODUCT USED FOR UNKNOWN INDICATION
     Dosage: 400 MG (20 TABLETS OF 20 MG)
     Route: 048
     Dates: start: 20151222, end: 20151222
  5. CLOMIPRAMINE [Suspect]
     Active Substance: CLOMIPRAMINE
     Indication: PRODUCT USED FOR UNKNOWN INDICATION
     Dosage: 600 MG, (24 TABLETS OF 25MG)
     Route: 048
     Dates: start: 20151222, end: 20151222
  6. AMLODIPINE [Suspect]
     Active Substance: AMLODIPINE BESYLATE
     Indication: PRODUCT USED FOR UNKNOWN INDICATION
     Dosage: 100 MG, UNK
     Route: 048
     Dates: start: 20151222, end: 20151222
  7. PARACETAMOL [Suspect]
     Active Substance: ACETAMINOPHEN
     Indication: PRODUCT USED FOR UNKNOWN INDICATION
     Dosage: 4 G, QD
     Route: 048
     Dates: start: 20151222, end: 20151222
  8. POTASSIUM [Suspect]
     Active Substance: POTASSIUM
     Indication: PRODUCT USED FOR UNKNOWN INDICATION
     Dosage: 20 MG, UNK
     Route: 048
  9. ESIDREX [Suspect]
     Active Substance: HYDROCHLOROTHIAZIDE
     Indication: PRODUCT USED FOR UNKNOWN INDICATION
     Dosage: 750 MG (30 TABLETS OF 25 MG)
     Route: 048
     Dates: start: 20151222, end: 20151222
  10. HYDROCHLOROTHIAZIDE. [Suspect]
     Active Substance: HYDROCHLOROTHIAZIDE
     Indication: PRODUCT USED FOR UNKNOWN INDICATION
     Dosage: 750 MG, (30TABLETS OF 25MG)
     Route: 048
  11. APIXABAN [Suspect]
     Active Substance: APIXABAN
     Indication: ANTICOAGULANT THERAPY
     Dosage: 230 MG, UNK
     Route: 048
  12. KALEROID [Suspect]
     Active Substance: POTASSIUM CHLORIDE
     Indication: PRODUCT USED FOR UNKNOWN INDICATION
     Dosage: 20000 MG (20 TABLETS OF 1000 MG)
     Route: 048
     Dates: start: 20151222, end: 20151222

REACTIONS (9)
  - Hypotension [Recovered/Resolved]
  - Intentional overdose [Recovered/Resolved]
  - Drug level increased [Unknown]
  - Shock [Recovered/Resolved]
  - Hypovolaemic shock [Unknown]
  - Poisoning deliberate [Recovered/Resolved]
  - Hypokalaemia [Recovered/Resolved]
  - Toxicity to various agents [Recovered/Resolved]
  - Cardiogenic shock [Recovered/Resolved]

NARRATIVE: CASE EVENT DATE: 20151222
